FAERS Safety Report 4846854-6 (Version None)
Quarter: 2005Q4

REPORT INFORMATION
  Report Type: 
  Country: None (occurrence: None)
  Receive Date: 20051207
  Receipt Date: 20050718
  Transmission Date: 20060501
  Serious: Yes (Hospitalization)
  Sender: FDA-Public Use
  Company Number: US-BRISTOL-MYERS SQUIBB COMPANY-13040829

PATIENT
  Age: 54 Year
  Sex: Female
  Weight: 107 kg

DRUGS (3)
  1. VIDEX EC [Suspect]
     Route: 048
     Dates: start: 20050101
  2. REYATAZ [Concomitant]
  3. ZIAGEN [Concomitant]

REACTIONS (1)
  - PARAESTHESIA [None]
